FAERS Safety Report 6774521-0 (Version None)
Quarter: 2010Q2

REPORT INFORMATION
  Report Type: 
  Country: None (occurrence: None)
  Receive Date: 20100617
  Receipt Date: 20100609
  Transmission Date: 20101027
  Serious: Yes (Other)
  Sender: FDA-Public Use
  Company Number: PHHY2010US38169

PATIENT
  Sex: Female

DRUGS (11)
  1. MIACALCIN [Suspect]
     Dosage: UNK
     Route: 045
  2. FOSAMAX [Suspect]
     Dosage: UNK
  3. ARIMIDEX [Suspect]
     Dosage: UNK
  4. TOPROL-XL [Concomitant]
     Dosage: UNK
  5. NORVASC [Concomitant]
     Dosage: UNK
  6. DIOVAN [Concomitant]
     Dosage: UNK
  7. CALCIUM W/VITAMIN D NOS [Concomitant]
     Dosage: UNK
  8. CENTRUM SILVER [Concomitant]
     Dosage: UNK
  9. GLUCOSAMINE [Concomitant]
     Dosage: UNK
  10. BILBERRY [Concomitant]
     Dosage: UNK
  11. NITROGLYCERIN [Concomitant]
     Dosage: UNK

REACTIONS (6)
  - APHAGIA [None]
  - BREAST CANCER [None]
  - DIARRHOEA [None]
  - DRUG INEFFECTIVE [None]
  - RHINALGIA [None]
  - RHINORRHOEA [None]
